FAERS Safety Report 10028719 (Version 2)
Quarter: 2014Q2

REPORT INFORMATION
  Report Type: Spontaneous
  Country: US (occurrence: US)
  Receive Date: 20140321
  Receipt Date: 20140508
  Transmission Date: 20141212
  Serious: No
  Sender: FDA-Public Use
  Company Number: US-009507513-1403USA003432

PATIENT
  Age: 38 Year
  Sex: Female

DRUGS (3)
  1. LIPTRUZET [Suspect]
     Indication: BLOOD CHOLESTEROL
     Dosage: 10/10 MG ONCE A DAY
     Route: 048
     Dates: start: 20131206, end: 20140227
  2. OMEGA-3 MARINE TRIGLYCERIDES [Concomitant]
     Dosage: PILLS
  3. CINNAMON [Concomitant]
     Dosage: PILLS

REACTIONS (6)
  - Chest discomfort [Not Recovered/Not Resolved]
  - Drug withdrawal syndrome [Not Recovered/Not Resolved]
  - Migraine [Unknown]
  - Fatigue [Not Recovered/Not Resolved]
  - Headache [Not Recovered/Not Resolved]
  - Drug dose omission [Unknown]
